FAERS Safety Report 6528401-6 (Version None)
Quarter: 2010Q1

REPORT INFORMATION
  Report Type: 
  Country: None (occurrence: None)
  Receive Date: 20100106
  Receipt Date: 20100104
  Transmission Date: 20100710
  Serious: Yes (Other)
  Sender: FDA-Public Use
  Company Number: A0834700A

PATIENT
  Age: 80 Year
  Sex: Female
  Weight: 77.3 kg

DRUGS (6)
  1. LOVAZA [Suspect]
     Dosage: 4CAP AT NIGHT
     Route: 048
     Dates: start: 20090619, end: 20090901
  2. FOSAMAX [Concomitant]
     Dosage: 70MG WEEKLY
     Route: 048
  3. FLAX OIL [Concomitant]
  4. GARLIC [Concomitant]
     Dosage: 1250MG THREE TIMES PER DAY
     Route: 048
  5. RED YEAST RICE [Concomitant]
  6. POLYCOSE [Concomitant]

REACTIONS (17)
  - AORTIC VALVE INCOMPETENCE [None]
  - AORTIC VALVE SCLEROSIS [None]
  - ARRHYTHMIA [None]
  - ATRIOVENTRICULAR BLOCK [None]
  - CARDIAC FLUTTER [None]
  - CHEST DISCOMFORT [None]
  - DIASTOLIC DYSFUNCTION [None]
  - DRUG HYPERSENSITIVITY [None]
  - EXTRASYSTOLES [None]
  - MITRAL VALVE INCOMPETENCE [None]
  - PALPITATIONS [None]
  - PULMONARY VALVE INCOMPETENCE [None]
  - PULSE ABNORMAL [None]
  - SUPRAVENTRICULAR EXTRASYSTOLES [None]
  - TRICUSPID VALVE INCOMPETENCE [None]
  - VENTRICULAR EXTRASYSTOLES [None]
  - VENTRICULAR HYPERTROPHY [None]
